FAERS Safety Report 9603173 (Version 1)
Quarter: 2013Q4

REPORT INFORMATION
  Report Type: Report from Study
  Country: BR (occurrence: BR)
  Receive Date: 20131007
  Receipt Date: 20131007
  Transmission Date: 20140711
  Serious: Yes (Other)
  Sender: FDA-Public Use
  Company Number: BR-TEVA-434979ISR

PATIENT
  Sex: Female
  Weight: 50 kg

DRUGS (1)
  1. COPAXONE [Suspect]
     Indication: MULTIPLE SCLEROSIS
     Dosage: 20 MILLIGRAM DAILY; AUTOJECT 2 IN 10 MM
     Route: 058
     Dates: start: 20130408

REACTIONS (2)
  - Paralysis [Recovered/Resolved]
  - Loss of consciousness [Recovered/Resolved]
